FAERS Safety Report 7924036-9 (Version None)
Quarter: 2011Q4

REPORT INFORMATION
  Report Type: 
  Country: None (occurrence: None)
  Receive Date: 20111117
  Receipt Date: 20110214
  Transmission Date: 20120403
  Serious: No
  Sender: FDA-Public Use
  Company Number: US-AMGEN-USASP2011008457

PATIENT
  Age: 76 Year

DRUGS (13)
  1. ENBREL [Suspect]
     Indication: PRODUCT USED FOR UNKNOWN INDICATION
     Dosage: 50 MG, 2 TIMES/WK
  2. PLAVIX [Concomitant]
     Dosage: 75 MG, UNK
  3. LASIX [Concomitant]
     Dosage: 20 MG, UNK
  4. DIGOXIN [Concomitant]
     Dosage: .25 MG, UNK
  5. MULTAQ [Concomitant]
     Dosage: 400 MG, UNK
  6. METFORMIN HCL [Concomitant]
     Dosage: 500 MG, UNK
  7. GLYBURIDE [Concomitant]
     Dosage: 2.5 MG, UNK
  8. POTASSIUM CHLORIDE [Concomitant]
     Dosage: 10 MEQ, UNK
  9. ZOCOR [Concomitant]
     Dosage: 20 MG, UNK
  10. TRAMADOL HCL [Concomitant]
     Dosage: 50 MG, UNK
  11. OMEPRAZOLE [Concomitant]
     Dosage: 20 MG, UNK
  12. WARFARIN SODIUM [Concomitant]
     Dosage: 5 MG, UNK
  13. METOPROLOL TARTRATE [Concomitant]
     Dosage: 50 MG, UNK

REACTIONS (3)
  - NASAL CONGESTION [None]
  - INCREASED UPPER AIRWAY SECRETION [None]
  - NASOPHARYNGITIS [None]
